FAERS Safety Report 8258470 (Version 10)
Quarter: 2013Q4

REPORT INFORMATION
  Report Type: Report from Study
  Country: JP (occurrence: JP)
  Receive Date: 20111122
  Receipt Date: 20131230
  Transmission Date: 20140711
  Serious: Yes (Death, Hospitalization, Other)
  Sender: FDA-Public Use
  Company Number: JP-PFIZER INC-2011280043

PATIENT
  Age: 78 Year
  Sex: Male
  Weight: 62 kg

DRUGS (17)
  1. TEMSIROLIMUS [Suspect]
     Indication: RENAL CELL CARCINOMA
     Dosage: 25 MG, WEEKLY
     Route: 042
     Dates: start: 20110912, end: 20111003
  2. TEMSIROLIMUS [Suspect]
     Dosage: 25 MG, SINGLE DOSE
     Route: 042
     Dates: start: 20111011, end: 20111011
  3. TEMSIROLIMUS [Suspect]
     Dosage: 25 MG, SINGLE DOSE
     Route: 042
     Dates: start: 20111017, end: 20111017
  4. POLARAMINE [Concomitant]
     Indication: PROPHYLAXIS
     Dosage: 5 MG, WEEKLY
     Route: 042
     Dates: start: 20110912, end: 20111003
  5. POLARAMINE [Concomitant]
     Dosage: 5 MG, SINGLE
     Route: 042
     Dates: start: 20111011
  6. POLARAMINE [Concomitant]
     Dosage: 5 MG, SINGLE
     Route: 042
     Dates: start: 20111017
  7. URSO [Concomitant]
     Dosage: 100 MG, 3X/DAY
     Route: 048
     Dates: end: 20111031
  8. ALTAT [Concomitant]
     Dosage: 75 MG, 2X/DAY
     Route: 048
     Dates: end: 20111031
  9. FORSENID [Concomitant]
     Dosage: 24 MG, 1X/DAY
     Route: 048
     Dates: end: 20111031
  10. MAGLAX [Concomitant]
     Dosage: 1 G, DIVIDED AT 3 TIMES A DAY
     Route: 048
     Dates: end: 20111031
  11. MARZULENE S [Concomitant]
     Dosage: DAILY DOSE OF 2 G DIVIDED AS 3 TIMES A DAY
     Route: 048
     Dates: end: 20111031
  12. LENDORMIN D [Concomitant]
     Dosage: 0.25 MG, 1X/DAY
     Route: 048
     Dates: end: 20111031
  13. AMARYL [Concomitant]
     Dosage: 1 MG, 1X/DAY
     Route: 048
     Dates: end: 20111031
  14. METGLUCO [Concomitant]
     Dosage: 250 MG, 2X/DAY
     Route: 048
     Dates: end: 20111031
  15. FERROMIA [Concomitant]
     Indication: RENAL CELL CARCINOMA
     Dosage: 50 MG, 2X/DAY
     Route: 048
     Dates: end: 20111031
  16. LOXONIN [Concomitant]
     Indication: RENAL CELL CARCINOMA
     Dosage: 60 MG, 2X/DAY
     Route: 048
     Dates: end: 20111031
  17. HUMULIN R [Concomitant]
     Dosage: 6 IU, 3X/DAY
     Dates: start: 20111024

REACTIONS (4)
  - Interstitial lung disease [Fatal]
  - Septic shock [Fatal]
  - Dyspnoea [Not Recovered/Not Resolved]
  - Pneumonia [Not Recovered/Not Resolved]
